FAERS Safety Report 23824913 (Version 1)
Quarter: 2024Q2

REPORT INFORMATION
  Report Type: Spontaneous
  Country: US (occurrence: US)
  Receive Date: 20240507
  Receipt Date: 20240507
  Transmission Date: 20240716
  Serious: No
  Sender: FDA-Public Use
  Company Number: US-Novugen Oncology Sdn. Bhd.-2156562

PATIENT
  Age: 80 Year
  Sex: Male

DRUGS (4)
  1. ABIRATERONE ACETATE [Suspect]
     Active Substance: ABIRATERONE ACETATE
     Indication: Prostate cancer
     Route: 065
  2. ORGOVYX [Suspect]
     Active Substance: RELUGOLIX
     Route: 048
  3. FLOMAX [Concomitant]
     Active Substance: TAMSULOSIN HYDROCHLORIDE
     Route: 065
  4. NIRAPARIB [Concomitant]
     Active Substance: NIRAPARIB
     Route: 065

REACTIONS (3)
  - Nasopharyngitis [Recovering/Resolving]
  - Feeling cold [Recovering/Resolving]
  - Fatigue [Recovering/Resolving]
